FAERS Safety Report 8241204-X (Version None)
Quarter: 2012Q1

REPORT INFORMATION
  Report Type: 
  Country: None (occurrence: None)
  Receive Date: 20120328
  Receipt Date: 20120325
  Transmission Date: 20120608
  Serious: No
  Sender: FDA-Public Use
  Company Number: US-TEVA-330404USA

PATIENT
  Sex: Female
  Weight: 72.64 kg

DRUGS (3)
  1. NUVARING [Concomitant]
     Indication: CONTRACEPTION
  2. MULTI-VITAMIN [Concomitant]
     Indication: MEDICAL DIET
  3. PLAN B ONE-STEP [Suspect]
     Indication: POST COITAL CONTRACEPTION
     Dosage: 1.5 MILLIGRAM;
     Route: 048
     Dates: start: 20120325, end: 20120325

REACTIONS (1)
  - VOMITING [None]
